FAERS Safety Report 17589651 (Version 1)
Quarter: 2020Q1

REPORT INFORMATION
  Report Type: Spontaneous
  Country: US (occurrence: US)
  Receive Date: 20200325
  Receipt Date: 20200325
  Transmission Date: 20200409
  Serious: Yes (Other)
  Sender: FDA-Public Use
  Company Number: None

PATIENT
  Age: 31 Year
  Sex: Female

DRUGS (1)
  1. PIQRAY [Suspect]
     Active Substance: ALPELISIB
     Route: 048
     Dates: start: 202001

REACTIONS (7)
  - Weight decreased [None]
  - Fatigue [None]
  - Rash [None]
  - Vomiting [None]
  - Diarrhoea [None]
  - Pyrexia [None]
  - Stomatitis [None]

NARRATIVE: CASE EVENT DATE: 20200325
